FAERS Safety Report 23657732 (Version 1)
Quarter: 2024Q1

REPORT INFORMATION
  Report Type: Spontaneous
  Country: CA (occurrence: CA)
  Receive Date: 20240321
  Receipt Date: 20240321
  Transmission Date: 20240410
  Serious: Yes (Other)
  Sender: FDA-Public Use
  Company Number: CA-SA-SAC20240311001253

PATIENT

DRUGS (6)
  1. HYDROXYCHLOROQUINE [Suspect]
     Active Substance: HYDROXYCHLOROQUINE
     Dosage: UNK
     Route: 065
  2. PREDNISONE [Concomitant]
     Active Substance: PREDNISONE
     Dosage: 15 MG, QD
     Dates: start: 202310
  3. METHOTREXATE [Concomitant]
     Active Substance: METHOTREXATE
     Dosage: UNK
     Dates: start: 202211
  4. METHOTREXATE [Concomitant]
     Active Substance: METHOTREXATE
     Dosage: 10 MG, WEEKLY
     Dates: start: 202303, end: 202306
  5. FOLIC ACID [Concomitant]
     Active Substance: FOLIC ACID
     Dosage: 5 MG, WEEKLY
  6. BACTRIM [Concomitant]
     Active Substance: SULFAMETHOXAZOLE\TRIMETHOPRIM
     Dosage: UNK, TIW (THREE TIMES PER WEEK - MONDAY - WEDNESDAY - FRIDAY- STILL TAKING )

REACTIONS (19)
  - Cholangitis sclerosing [Unknown]
  - Neuropathy peripheral [Unknown]
  - Epistaxis [Unknown]
  - Dry mouth [Unknown]
  - Dry eye [Unknown]
  - Bone density decreased [Unknown]
  - Gingival disorder [Unknown]
  - Swollen tongue [Unknown]
  - Teeth brittle [Unknown]
  - Non-alcoholic fatty liver [Unknown]
  - Lung disorder [Unknown]
  - Osteoarthritis [Unknown]
  - Fibromyalgia [Unknown]
  - Gastrooesophageal reflux disease [Unknown]
  - Chronic fatigue syndrome [Unknown]
  - Anxiety [Unknown]
  - Depression [Unknown]
  - Vomiting [Unknown]
  - Nausea [Unknown]
